FAERS Safety Report 9136678 (Version 1)
Quarter: 2013Q1

REPORT INFORMATION
  Report Type: Spontaneous
  Country: US (occurrence: US)
  Receive Date: 20130304
  Receipt Date: 20130304
  Transmission Date: 20140127
  Serious: No
  Sender: FDA-Public Use
  Company Number: US-ABBOTT-12P-163-0912284-00

PATIENT
  Sex: Male
  Weight: 81.72 kg

DRUGS (4)
  1. ANDROGEL 1% [Suspect]
     Indication: BLOOD TESTOSTERONE DECREASED
     Dates: start: 2011, end: 2011
  2. LIPITOR [Concomitant]
     Indication: BLOOD CHOLESTEROL INCREASED
  3. DIOVAN [Concomitant]
     Indication: HYPERTENSION
  4. PRADAXA [Concomitant]
     Indication: ANTICOAGULANT THERAPY

REACTIONS (2)
  - Prostatic specific antigen increased [Recovered/Resolved]
  - Blood testosterone decreased [Not Recovered/Not Resolved]
